FAERS Safety Report 6407070-X (Version None)
Quarter: 2009Q4

REPORT INFORMATION
  Report Type: 
  Country: None (occurrence: None)
  Receive Date: 20091014
  Receipt Date: 20090928
  Transmission Date: 20100525
  Serious: Yes (Hospitalization)
  Sender: FDA-Public Use
  Company Number: DSA_41813_2009

PATIENT
  Sex: Male

DRUGS (14)
  1. TILDIEM      (TILDIEM-DILTIAZEM HYDROCHLORIDE-TABLET) [Suspect]
     Indication: DRUG USE FOR UNKNOWN INDICATION
     Dosage: 60 MG BID ORAL, 90 MG BID ORAL, 120 MG BID ORAL
     Route: 048
     Dates: start: 20090801, end: 20090801
  2. TILDIEM      (TILDIEM-DILTIAZEM HYDROCHLORIDE-TABLET) [Suspect]
     Indication: DRUG USE FOR UNKNOWN INDICATION
     Dosage: 60 MG BID ORAL, 90 MG BID ORAL, 120 MG BID ORAL
     Route: 048
     Dates: start: 20090804, end: 20090801
  3. TILDIEM      (TILDIEM-DILTIAZEM HYDROCHLORIDE-TABLET) [Suspect]
     Indication: DRUG USE FOR UNKNOWN INDICATION
     Dosage: 60 MG BID ORAL, 90 MG BID ORAL, 120 MG BID ORAL
     Route: 048
     Dates: start: 20090801, end: 20090911
  4. ASPEGIC 1000 [Concomitant]
  5. CARDENSIEL [Concomitant]
  6. LASILIX [Concomitant]
  7. CRESTOR [Concomitant]
  8. PREVISCAN [Concomitant]
  9. COVERSYL [Concomitant]
  10. ACETAMINOPHEN [Concomitant]
  11. DIFFU K [Concomitant]
  12. SPECIFOLDINE [Concomitant]
  13. STILNOX [Concomitant]
  14. BRISTOPEN [Concomitant]

REACTIONS (2)
  - PRURITUS [None]
  - RASH MACULO-PAPULAR [None]
